FAERS Safety Report 9182105 (Version 1)
Quarter: 2013Q1

REPORT INFORMATION
  Report Type: Spontaneous
  Country: US (occurrence: None)
  Receive Date: 20120622
  Receipt Date: 20120622
  Transmission Date: 20140127
  Serious: Yes (Other)
  Sender: FDA-Public Use
  Company Number: PHHY2012TW031168

PATIENT
  Age: 66 Year
  Sex: 0
  Weight: 46 kg

DRUGS (2)
  1. SEBIVO [Suspect]
     Route: 048
     Dates: start: 20110512
  2. PEICHIA (ALDOIXA, ALUMINUM MAGNESIUM SILICATE) [Concomitant]

REACTIONS (1)
  - Hypoaesthesia [None]
